FAERS Safety Report 4854227-5 (Version None)
Quarter: 2005Q4

REPORT INFORMATION
  Report Type: 
  Country: None (occurrence: None)
  Receive Date: 20051213
  Receipt Date: 20051213
  Transmission Date: 20060501
  Serious: Yes (Other)
  Sender: FDA-Public Use
  Company Number: None

PATIENT
  Age: 57 Year
  Sex: Female
  Weight: 59 kg

DRUGS (9)
  1. CANCIDAS [Suspect]
     Indication: NEUTROPENIA
     Dosage: 70 MG ONCE IV BOLUS
     Route: 040
     Dates: start: 20051206, end: 20051206
  2. CANCIDAS [Suspect]
     Indication: PYREXIA
     Dosage: 70 MG ONCE IV BOLUS
     Route: 040
     Dates: start: 20051206, end: 20051206
  3. CEFEPIME [Concomitant]
  4. VANCOMYCIN [Concomitant]
  5. LEVOFLOXACIN [Concomitant]
  6. METRONIDAZOLE [Concomitant]
  7. LANSOPRAZOLE [Concomitant]
  8. ACYCLOVIR [Concomitant]
  9. BAKING SODA MOUTH RINSE [Concomitant]

REACTIONS (8)
  - ANXIETY [None]
  - CHILLS [None]
  - HEADACHE [None]
  - INFUSION RELATED REACTION [None]
  - NAUSEA [None]
  - PYREXIA [None]
  - RASH ERYTHEMATOUS [None]
  - RASH GENERALISED [None]
